FAERS Safety Report 14165021 (Version 3)
Quarter: 2018Q2

REPORT INFORMATION
  Report Type: Report from Study
  Country: US (occurrence: US)
  Receive Date: 20171107
  Receipt Date: 20180612
  Transmission Date: 20180711
  Serious: Yes (Hospitalization)
  Sender: FDA-Public Use
  Company Number: PHHO2017US013634

PATIENT
  Age: 58 Year
  Sex: Male
  Weight: 95.1 kg

DRUGS (10)
  1. SPIRONOLACTONE. [Concomitant]
     Active Substance: SPIRONOLACTONE
     Indication: CARDIAC FAILURE CHRONIC
     Dosage: 25 MG, QD
     Route: 048
     Dates: start: 2013
  2. LASIX [Suspect]
     Active Substance: FUROSEMIDE
     Indication: CARDIAC FAILURE CONGESTIVE
     Dosage: 20 MG, BID
     Route: 065
     Dates: start: 20130707, end: 20180529
  3. COREG [Suspect]
     Active Substance: CARVEDILOL
     Indication: PRODUCT USED FOR UNKNOWN INDICATION
     Dosage: UNK
     Route: 065
  4. CARVEDILOL. [Concomitant]
     Active Substance: CARVEDILOL
     Indication: CARDIAC FAILURE CONGESTIVE
     Dosage: 6.25 MG, BID
     Route: 048
     Dates: start: 20170927, end: 20180529
  5. RANEXA [Concomitant]
     Active Substance: RANOLAZINE
     Indication: CARDIAC FAILURE CONGESTIVE
     Dosage: 500 MG, BID
     Route: 065
     Dates: start: 20170504, end: 20180529
  6. ALBUTEROL HFA [Concomitant]
     Active Substance: ALBUTEROL SULFATE
     Indication: CHRONIC OBSTRUCTIVE PULMONARY DISEASE
     Dosage: 180 UG, UNK
     Route: 065
     Dates: start: 20170926
  7. SYMBICORT [Concomitant]
     Active Substance: BUDESONIDE\FORMOTEROL FUMARATE DIHYDRATE
     Indication: CHRONIC OBSTRUCTIVE PULMONARY DISEASE
     Dosage: 80-4.5 MCG
     Route: 065
     Dates: start: 20170926
  8. ENTRESTO [Suspect]
     Active Substance: SACUBITRIL\VALSARTAN
     Indication: CARDIAC FAILURE
     Dosage: 1 DF, BID (24/26MG)
     Route: 048
     Dates: start: 20170810, end: 20180529
  9. COUMADIN [Concomitant]
     Active Substance: WARFARIN SODIUM
     Indication: ATRIAL FIBRILLATION
     Dosage: 5 MG, QD
     Route: 065
     Dates: start: 20130603, end: 20180529
  10. DIGOXIN. [Concomitant]
     Active Substance: DIGOXIN
     Indication: ATRIAL FIBRILLATION
     Dosage: 0.125 MG, QD
     Route: 048
     Dates: start: 20171010

REACTIONS (9)
  - Hypotension [Recovering/Resolving]
  - Chronic obstructive pulmonary disease [Recovered/Resolved]
  - Hyponatraemia [Recovering/Resolving]
  - Cardiac failure acute [Unknown]
  - Constipation [Unknown]
  - Cellulitis [Recovering/Resolving]
  - Chronic obstructive pulmonary disease [Recovering/Resolving]
  - Pneumonia [Recovering/Resolving]
  - Acute respiratory failure [Recovering/Resolving]

NARRATIVE: CASE EVENT DATE: 20170923
